FAERS Safety Report 14300944 (Version 2)
Quarter: 2018Q1

REPORT INFORMATION
  Report Type: Spontaneous
  Country: GB (occurrence: GB)
  Receive Date: 20171219
  Receipt Date: 20180314
  Transmission Date: 20180509
  Serious: Yes (Other)
  Sender: FDA-Public Use
  Company Number: GB-BAXTER-2017BAX039111

PATIENT
  Age: 73 Year
  Sex: Female
  Weight: 50.2 kg

DRUGS (18)
  1. VELCADE [Suspect]
     Active Substance: BORTEZOMIB
     Dosage: VMP REGIMEN, DAY 4 OF CYCLE 2, DOSE ALSO REPORTED AS 2 MG, COMPOUNDED WITH SODIUM CHLORIDE, DOSAGE F
     Route: 058
     Dates: start: 20171106, end: 20171106
  2. SERTRALINE [Concomitant]
     Active Substance: SERTRALINE HYDROCHLORIDE
     Indication: PRODUCT USED FOR UNKNOWN INDICATION
     Dosage: OM (EVERY MORNING)
     Route: 065
  3. RAMIPRIL. [Concomitant]
     Active Substance: RAMIPRIL
     Indication: PRODUCT USED FOR UNKNOWN INDICATION
     Dosage: OM (EVERY MORNING)
     Route: 065
  4. VELCADE [Suspect]
     Active Substance: BORTEZOMIB
     Indication: PLASMA CELL LEUKAEMIA
     Dosage: VMP REGIMEN, CYCLE 1, ON DAYS 1, 4, 8, 11, 22, 25, 29 AND 32, DOSAGE FORM: LYOPHILIZED POWDER
     Route: 058
  5. SODIUM CHLORIDE 0.9% INTRAVENOUS INFUSION BP [Suspect]
     Active Substance: SODIUM CHLORIDE
     Dosage: DAY 8 OF CYCLE 2, VMP REGIMEN, COMPOUNDED WITH BORTEZOMIB
     Route: 058
     Dates: start: 20171110, end: 20171110
  6. VELCADE [Suspect]
     Active Substance: BORTEZOMIB
     Dosage: VMP REGIMEN, DAY 8 OF CYCLE 2, DOSE ALSO REPORTED AS 2 MG, COMPOUNDED WITH SODIUM CHLORIDE, DOSAGE F
     Route: 058
     Dates: start: 20171110, end: 20171110
  7. PREDNISOLONE. [Suspect]
     Active Substance: PREDNISOLONE
     Indication: PLASMA CELL LEUKAEMIA
     Dosage: CYCLE 1, VMP REGIMEN
     Route: 065
  8. PREDNISONE. [Suspect]
     Active Substance: PREDNISONE
     Dosage: DOSAGE FORM: UNSPECIFIED.
     Route: 065
     Dates: start: 20171103, end: 20171106
  9. SODIUM CHLORIDE 0.9% INTRAVENOUS INFUSION BP [Suspect]
     Active Substance: SODIUM CHLORIDE
     Indication: MEDICATION DILUTION
     Dosage: DAY 1 OF CYCLE 2, VMP REGIMEN, COMPOUNDED WITH BORTEZOMIB
     Route: 058
     Dates: start: 20171103, end: 20171103
  10. VELCADE [Suspect]
     Active Substance: BORTEZOMIB
     Dosage: VMP REGIMEN, DAY 1 OF CYCLE 2, DOSE ALSO REPORTED AS 2 MG, COMPOUNDED WITH SODIUM CHLORIDE, DOSAGE F
     Route: 058
     Dates: start: 20171103, end: 20171103
  11. BENDROFLUMETHIAZIDE [Concomitant]
     Active Substance: BENDROFLUMETHIAZIDE
     Indication: PRODUCT USED FOR UNKNOWN INDICATION
     Dosage: OM (EVERY MORNING)
     Route: 065
  12. PREDNISOLONE. [Suspect]
     Active Substance: PREDNISOLONE
     Dosage: VMP REGIMEN, DAY 1 TO 4, CYCLE 2
     Route: 065
     Dates: start: 20171103, end: 20171106
  13. SODIUM CHLORIDE 0.9% INTRAVENOUS INFUSION BP [Suspect]
     Active Substance: SODIUM CHLORIDE
     Dosage: DAY 4 OF CYCLE 2, VMP REGIMEN, COMPOUNDED WITH BORTEZOMIB
     Route: 058
     Dates: start: 20171106, end: 20171106
  14. MELPHALAN. [Suspect]
     Active Substance: MELPHALAN
     Indication: PLASMA CELL LEUKAEMIA
     Dosage: CYCLE 1, VMP REGIMEN
     Route: 065
  15. MELPHALAN. [Suspect]
     Active Substance: MELPHALAN
     Dosage: VMP REGIMEN, DAY 1 TO 4, CYCLE 2
     Route: 065
     Dates: start: 20171103, end: 20171106
  16. PREDNISONE. [Suspect]
     Active Substance: PREDNISONE
     Indication: PLASMA CELL LEUKAEMIA
     Dosage: DOSAGE FORM: UNSPECIFIED.
     Route: 065
  17. OMEPRAZOLE. [Concomitant]
     Active Substance: OMEPRAZOLE
     Indication: PRODUCT USED FOR UNKNOWN INDICATION
     Dosage: OM (EVERY MORNING)
     Route: 065
  18. METOCLOPRAMIDE. [Concomitant]
     Active Substance: METOCLOPRAMIDE
     Indication: PRODUCT USED FOR UNKNOWN INDICATION
     Dosage: QDS PRN
     Route: 065

REACTIONS (5)
  - Abnormal behaviour [Not Recovered/Not Resolved]
  - Emotional distress [Not Recovered/Not Resolved]
  - Confusional state [Not Recovered/Not Resolved]
  - Agitation [Not Recovered/Not Resolved]
  - Paranoia [Not Recovered/Not Resolved]

NARRATIVE: CASE EVENT DATE: 20171111
